FAERS Safety Report 16918516 (Version 4)
Quarter: 2020Q2

REPORT INFORMATION
  Report Type: Spontaneous
  Country: US (occurrence: US)
  Receive Date: 20191015
  Receipt Date: 20200601
  Transmission Date: 20200713
  Serious: Yes (Hospitalization, Other)
  Sender: FDA-Public Use
  Company Number: US-PFIZER INC-2019388816

PATIENT
  Sex: Female
  Weight: 54.42 kg

DRUGS (2)
  1. PREMARIN [Suspect]
     Active Substance: ESTROGENS, CONJUGATED
     Indication: BLOOD OESTROGEN DECREASED
     Dosage: UNK UNK, DAILY (.0625 1 DAILY)
  2. PREMARIN [Suspect]
     Active Substance: ESTROGENS, CONJUGATED
     Indication: URETHRAL PROLAPSE
     Dosage: 0.062 MG, 1X/DAY ( .0625MG, ONCE A NIGHT))
     Dates: end: 202005

REACTIONS (7)
  - Gastrooesophageal reflux disease [Recovered/Resolved]
  - Dysphagia [Unknown]
  - Off label use [Unknown]
  - Lung disorder [Recovered/Resolved]
  - Choking [Unknown]
  - Hernia [Recovered/Resolved]
  - Emotional disorder [Unknown]

NARRATIVE: CASE EVENT DATE: 201709
